FAERS Safety Report 4723475-7 (Version None)
Quarter: 2005Q3

REPORT INFORMATION
  Report Type: 
  Country: None (occurrence: None)
  Receive Date: 20050725
  Receipt Date: 20050714
  Transmission Date: 20060218
  Serious: Yes (Hospitalization)
  Sender: FDA-Public Use
  Company Number: JP-GLAXOSMITHKLINE-B0387784A

PATIENT
  Age: 84 Year
  Sex: Female
  Weight: 39 kg

DRUGS (10)
  1. VALTREX [Suspect]
     Indication: HERPES ZOSTER
     Dosage: 500U PER DAY
     Route: 048
     Dates: start: 20050708, end: 20050712
  2. BUFFERIN [Concomitant]
     Route: 048
  3. CALCITRIOL [Concomitant]
     Route: 048
  4. ADALAT [Concomitant]
     Route: 048
  5. CARDENALIN [Concomitant]
     Route: 048
  6. NE-KOTANI [Concomitant]
     Route: 048
  7. CALTAN [Concomitant]
     Route: 048
  8. XANTOFYL PALMITATE [Concomitant]
     Route: 048
  9. CARNACULIN [Concomitant]
     Route: 048
  10. PIRENOXINE [Concomitant]
     Route: 031

REACTIONS (1)
  - DELIRIUM [None]
